FAERS Safety Report 8616195-X (Version None)
Quarter: 2012Q3

REPORT INFORMATION
  Report Type: 
  Country: None (occurrence: None)
  Receive Date: 20120823
  Receipt Date: 20120815
  Transmission Date: 20120928
  Serious: Yes (Hospitalization, Disabling, Other)
  Sender: FDA-Public Use
  Company Number: US-009507513-1206USA04638

PATIENT

DRUGS (3)
  1. FOSAMAX PLUS D [Suspect]
     Dosage: 70/2800 MG, UNK
     Route: 048
     Dates: start: 20060616
  2. FOSAMAX [Suspect]
     Dosage: 70 MG, QW
     Route: 048
     Dates: start: 20010208
  3. FOSAMAX [Suspect]
     Indication: OSTEOPOROSIS
     Dosage: 10 MG, QD
     Route: 048
     Dates: start: 19981101, end: 20061231

REACTIONS (10)
  - DEVICE FAILURE [None]
  - IMPAIRED HEALING [None]
  - SURGERY [None]
  - LOW TURNOVER OSTEOPATHY [None]
  - OSTEOPOROSIS [None]
  - FEMUR FRACTURE [None]
  - MULTIPLE FRACTURES [None]
  - HYPERSENSITIVITY [None]
  - ESSENTIAL HYPERTENSION [None]
  - RHEUMATOID ARTHRITIS [None]
